FAERS Safety Report 5120038-9 (Version None)
Quarter: 2006Q3

REPORT INFORMATION
  Report Type: 
  Country: None (occurrence: None)
  Receive Date: 20060929
  Receipt Date: 20060124
  Transmission Date: 20061208
  Serious: Yes (Other)
  Sender: FDA-Public Use
  Company Number: 2006013878

PATIENT
  Age: 70 Year
  Sex: Female

DRUGS (2)
  1. PHENYTOIN [Suspect]
     Indication: ILL-DEFINED DISORDER
  2. VALPROIC ACID [Suspect]
     Indication: DRUG USE FOR UNKNOWN INDICATION

REACTIONS (2)
  - HEPATIC TRAUMA [None]
  - HEPATITIS CHOLESTATIC [None]
